FAERS Safety Report 18563518 (Version 1)
Quarter: 2020Q4

REPORT INFORMATION
  Report Type: Spontaneous
  Country: US (occurrence: US)
  Receive Date: 20201201
  Receipt Date: 20201201
  Transmission Date: 20210114
  Serious: Yes (Hospitalization, Other)
  Sender: FDA-Public Use
  Company Number: US-DRREDDYS-USA/USA/20/0129589

PATIENT
  Age: 48 Year
  Sex: Male

DRUGS (3)
  1. CLOMIFENE [Suspect]
     Active Substance: CLOMIPHENE
     Indication: BLOOD TESTOSTERONE DECREASED
  2. CLOMIFENE [Suspect]
     Active Substance: CLOMIPHENE
     Indication: ABSCESS
  3. OLANZAPINE FILM-COATED TABLET [Suspect]
     Active Substance: OLANZAPINE
     Indication: ANXIETY
     Route: 048

REACTIONS (2)
  - Transaminases increased [Unknown]
  - Bipolar disorder [Unknown]
